FAERS Safety Report 21155663 (Version 1)
Quarter: 2022Q3

REPORT INFORMATION
  Report Type: Report from Study
  Country: US (occurrence: US)
  Receive Date: 20220801
  Receipt Date: 20220801
  Transmission Date: 20221027
  Serious: Yes (Hospitalization, Other)
  Sender: FDA-Public Use
  Company Number: US-NOVARTISPH-NVSC2022US149559

PATIENT
  Age: 69 Year
  Sex: Male
  Weight: 179 kg

DRUGS (4)
  1. PLUVICTO [Suspect]
     Active Substance: LUTETIUM LU-177 VIPIVOTIDE TETRAXETAN
     Indication: Prostate cancer metastatic
     Dosage: 7.4 GBQ
     Route: 042
     Dates: start: 20220331, end: 20220331
  2. PROTONIX [Concomitant]
     Active Substance: PANTOPRAZOLE SODIUM
     Indication: Product used for unknown indication
     Route: 065
  3. VANCOMYCIN [Concomitant]
     Active Substance: VANCOMYCIN
     Indication: Product used for unknown indication
     Dosage: UNK
     Route: 065
  4. ZOSYN [Concomitant]
     Active Substance: PIPERACILLIN SODIUM\TAZOBACTAM SODIUM
     Indication: Product used for unknown indication
     Dosage: UNK
     Route: 065

REACTIONS (26)
  - Sepsis [Not Recovered/Not Resolved]
  - Pyrexia [Unknown]
  - Malaise [Unknown]
  - Confusional state [Unknown]
  - Hypoxia [Unknown]
  - Tachycardia [Unknown]
  - Hypotension [Unknown]
  - Disease progression [Unknown]
  - Pathological fracture [Unknown]
  - Metastases to bone [Unknown]
  - Abdominal lymphadenopathy [Unknown]
  - Haemoglobin decreased [Unknown]
  - Pneumonia [Unknown]
  - Prostate cancer [Unknown]
  - Musculoskeletal chest pain [Unknown]
  - Ill-defined disorder [Unknown]
  - Constipation [Unknown]
  - Faeces discoloured [Unknown]
  - Dyspepsia [Unknown]
  - White blood cell count decreased [Unknown]
  - Platelet count decreased [Unknown]
  - Liver function test increased [Unknown]
  - Occult blood positive [Unknown]
  - Lung consolidation [Unknown]
  - Pleural effusion [Unknown]
  - Diverticulum intestinal [Unknown]

NARRATIVE: CASE EVENT DATE: 20220716
